FAERS Safety Report 18901706 (Version 6)
Quarter: 2022Q1

REPORT INFORMATION
  Report Type: Report from Study
  Country: US (occurrence: US)
  Receive Date: 20210217
  Receipt Date: 20220316
  Transmission Date: 20220424
  Serious: No
  Sender: FDA-Public Use
  Company Number: US-NOVARTISTESTPH-NVSC2021US030033

PATIENT
  Sex: Male

DRUGS (3)
  1. ENTRESTO [Suspect]
     Active Substance: SACUBITRIL\VALSARTAN
     Indication: Product used for unknown indication
     Dosage: UNK, BID
     Route: 048
  2. ENTRESTO [Suspect]
     Active Substance: SACUBITRIL\VALSARTAN
     Dosage: 50 MG, BID
     Route: 048
     Dates: start: 202103
  3. LASIX [Concomitant]
     Active Substance: FUROSEMIDE
     Indication: Product used for unknown indication
     Route: 065

REACTIONS (10)
  - Dyspepsia [Recovered/Resolved]
  - Sleep apnoea syndrome [Unknown]
  - Insomnia [Unknown]
  - Lacrimation increased [Unknown]
  - Weight decreased [Unknown]
  - Dyspepsia [Unknown]
  - Peripheral swelling [Unknown]
  - Blood creatine increased [Unknown]
  - Brain natriuretic peptide increased [Unknown]
  - Dizziness [Unknown]
